FAERS Safety Report 4543142-2 (Version None)
Quarter: 2004Q4

REPORT INFORMATION
  Report Type: 
  Country: None (occurrence: None)
  Receive Date: 20041228
  Receipt Date: 20041209
  Transmission Date: 20050328
  Serious: Yes (Other)
  Sender: FDA-Public Use
  Company Number: 601559

PATIENT
  Age: 41 Year
  Sex: Male

DRUGS (2)
  1. RECOMBINATE [Suspect]
     Indication: HAEMORRHAGE
     Dosage: BIW; INTRAVENOUS
     Route: 042
     Dates: end: 20040101
  2. RECOMBINATE [Suspect]
     Indication: PROPHYLAXIS
     Dosage: BIW; INTRAVENOUS
     Route: 042
     Dates: end: 20040101

REACTIONS (6)
  - DEPRESSED LEVEL OF CONSCIOUSNESS [None]
  - DISTURBANCE IN ATTENTION [None]
  - DYSPNOEA [None]
  - PRURITUS [None]
  - URTICARIA GENERALISED [None]
  - WHEEZING [None]
